FAERS Safety Report 4604827-2 (Version None)
Quarter: 2005Q2

REPORT INFORMATION
  Report Type: 
  Country: None (occurrence: None)
  Receive Date: 20050224
  Receipt Date: 20041103
  Transmission Date: 20051028
  Serious: Yes (Death)
  Sender: FDA-Public Use
  Company Number: 04P-163-0279748-00

PATIENT
  Age: 47 Year
  Sex: Female

DRUGS (1)
  1. DILAUDID [Suspect]
     Indication: POST PROCEDURAL PAIN
     Dosage: PATIENT CONTROLLED ANALGESIA
     Dates: start: 20030910

REACTIONS (2)
  - MEDICATION ERROR [None]
  - OVERDOSE [None]
